FAERS Safety Report 24987669 (Version 2)
Quarter: 2025Q1

REPORT INFORMATION
  Report Type: Spontaneous
  Country: US (occurrence: US)
  Receive Date: 20250219
  Receipt Date: 20250327
  Transmission Date: 20250409
  Serious: Yes (Hospitalization)
  Sender: ALEXION PHARMACEUTICALS
  Company Number: US-AstraZeneca-CH-00806313AP

PATIENT
  Age: 53 Year

DRUGS (1)
  1. BYDUREON BCISE [Suspect]
     Active Substance: EXENATIDE

REACTIONS (7)
  - Urine abnormality [Unknown]
  - Fluid intake reduced [Unknown]
  - Pain [Unknown]
  - Feeling abnormal [Unknown]
  - Device defective [Unknown]
  - Device physical property issue [Unknown]
  - Product dose omission issue [Unknown]
